FAERS Safety Report 11674798 (Version 1)
Quarter: 2015Q4

REPORT INFORMATION
  Report Type: Spontaneous
  Country: US (occurrence: US)
  Receive Date: 20151027
  Receipt Date: 20151027
  Transmission Date: 20160304
  Serious: No
  Sender: FDA-Public Use
  Company Number: US-ELI_LILLY_AND_COMPANY-US201007002561

PATIENT
  Sex: Female

DRUGS (11)
  1. TEGRETAL [Concomitant]
     Active Substance: CARBAMAZEPINE
  2. NEURONTIN [Concomitant]
     Active Substance: GABAPENTIN
  3. CLONIDINE. [Concomitant]
     Active Substance: CLONIDINE
  4. INDAPAMIDE. [Concomitant]
     Active Substance: INDAPAMIDE
  5. FORTEO [Suspect]
     Active Substance: TERIPARATIDE
     Indication: OSTEOPOROSIS
     Dosage: 20 UG, DAILY (1/D)
  6. MORPHINE [Concomitant]
     Active Substance: MORPHINE
     Indication: PAIN
  7. POTASSIUM [Concomitant]
     Active Substance: POTASSIUM
     Indication: MINERAL SUPPLEMENTATION
  8. FORTEO [Suspect]
     Active Substance: TERIPARATIDE
     Dosage: 20 UG, DAILY (1/D)
  9. GLYBURIDE/METFORMIN [Concomitant]
     Active Substance: GLYBURIDE\METFORMIN
  10. ACTOS [Concomitant]
     Active Substance: PIOGLITAZONE HYDROCHLORIDE
  11. LASIX [Concomitant]
     Active Substance: FUROSEMIDE

REACTIONS (12)
  - Depression [Not Recovered/Not Resolved]
  - Haemorrhage subcutaneous [Not Recovered/Not Resolved]
  - Blood pressure increased [Unknown]
  - Discomfort [Unknown]
  - Blood blister [Unknown]
  - Anger [Unknown]
  - Irritability [Unknown]
  - Bite [Unknown]
  - Scratch [Unknown]
  - Asthenia [Unknown]
  - Impaired healing [Unknown]
  - Blister [Not Recovered/Not Resolved]
